FAERS Safety Report 17600078 (Version 2)
Quarter: 2020Q2

REPORT INFORMATION
  Report Type: Spontaneous
  Country: US (occurrence: US)
  Receive Date: 20200330
  Receipt Date: 20200630
  Transmission Date: 20200713
  Serious: No
  Sender: FDA-Public Use
  Company Number: US-INDIVIOR LIMITED-INDV-123613-2020

PATIENT
  Age: 27 Year
  Sex: Female

DRUGS (1)
  1. SUBLOCADE [Suspect]
     Active Substance: BUPRENORPHINE
     Indication: DRUG DEPENDENCE
     Dosage: 300 MILLIGRAM, QMO (2 DOSES)
     Route: 030

REACTIONS (6)
  - Product use issue [Unknown]
  - Dizziness [Unknown]
  - Constipation [Unknown]
  - Drug withdrawal syndrome [Unknown]
  - Influenza like illness [Recovered/Resolved]
  - Paraesthesia [Unknown]
